FAERS Safety Report 17755318 (Version 2)
Quarter: 2020Q2

REPORT INFORMATION
  Report Type: Spontaneous
  Country: CA (occurrence: US)
  Receive Date: 20200507
  Receipt Date: 20200515
  Transmission Date: 20200714
  Serious: Yes (Congenital Anomaly, Other)
  Sender: FDA-Public Use
  Company Number: CA-SA-2020SA113212

PATIENT
  Sex: Female

DRUGS (1)
  1. CLOMIFENE CITRATE [Suspect]
     Active Substance: CLOMIPHENE
     Indication: MATERNAL EXPOSURE DURING PREGNANCY
     Dosage: 100 MG, QD
     Route: 064

REACTIONS (6)
  - Overdose [Unknown]
  - Nystagmus [Unknown]
  - Congenital vitreous anomaly [Unknown]
  - Visual impairment [Unknown]
  - Foetal exposure during pregnancy [Unknown]
  - Eye movement disorder [Unknown]
